FAERS Safety Report 9269030 (Version 4)
Quarter: 2013Q2

REPORT INFORMATION
  Report Type: Spontaneous
  Country: GR (occurrence: GR)
  Receive Date: 20130503
  Receipt Date: 20130620
  Transmission Date: 20140414
  Serious: Yes (Other)
  Sender: FDA-Public Use
  Company Number: GR-AMGEN-GRCSP2013029309

PATIENT
  Age: 52 Year
  Sex: Female

DRUGS (6)
  1. NPLATE [Suspect]
     Indication: IDIOPATHIC THROMBOCYTOPENIC PURPURA
     Dosage: 750 MUG, QWK
     Route: 058
     Dates: start: 20090617
  2. CORTISONE [Concomitant]
  3. RITUXIMAB [Concomitant]
  4. ANTI D [Concomitant]
  5. IMMUNOSUPPRESSANTS [Concomitant]
  6. IVIGLOB-EX [Concomitant]

REACTIONS (5)
  - Therapeutic response decreased [Not Recovered/Not Resolved]
  - Platelet count decreased [Not Recovered/Not Resolved]
  - Metrorrhagia [Unknown]
  - Mucosal haemorrhage [Unknown]
  - Mouth haemorrhage [Unknown]
